FAERS Safety Report 7605786-0 (Version None)
Quarter: 2011Q3

REPORT INFORMATION
  Report Type: 
  Country: None (occurrence: None)
  Receive Date: 20110705
  Receipt Date: 20110622
  Transmission Date: 20111222
  Serious: Yes (Hospitalization)
  Sender: FDA-Public Use
  Company Number: 2011MA007969

PATIENT
  Age: 57 Year
  Sex: Male
  Weight: 79.3341 kg

DRUGS (8)
  1. STUDY DRUG [Suspect]
     Indication: MYELOFIBROSIS
     Dosage: 5 MG
     Dates: start: 20100506
  2. ALLOPURINOL [Concomitant]
  3. FUROSEMIDE [Concomitant]
  4. LEVOTHYROXINE SODUM [Concomitant]
  5. OXYCODONE HCL [Suspect]
     Indication: PAIN
     Dosage: 15 MG;Q4H
     Dates: start: 20080716
  6. PAROXETINE HCL [Concomitant]
  7. SPIRONOLACTONE [Concomitant]
  8. LACTULOSE [Concomitant]

REACTIONS (8)
  - FALL [None]
  - CONFUSIONAL STATE [None]
  - SCRATCH [None]
  - CONTUSION [None]
  - ABDOMINAL PAIN [None]
  - LACERATION [None]
  - CONDITION AGGRAVATED [None]
  - THROMBOCYTOPENIA [None]
